FAERS Safety Report 13329100 (Version 1)
Quarter: 2017Q1

REPORT INFORMATION
  Report Type: Report from Study
  Country: VE (occurrence: VE)
  Receive Date: 20170313
  Receipt Date: 20170313
  Transmission Date: 20170428
  Serious: Yes (Death)
  Sender: FDA-Public Use
  Company Number: PHHY2015VE115221

PATIENT
  Sex: Male

DRUGS (2)
  1. EXJADE [Suspect]
     Active Substance: DEFERASIROX
     Indication: MYELOFIBROSIS
     Dosage: 2 DF, QD
     Route: 048
     Dates: start: 20150404
  2. RECORMON                                /SCH/ [Concomitant]
     Indication: RED BLOOD CELL ABNORMALITY
     Dosage: 10000 MG, UNK
     Route: 065

REACTIONS (6)
  - Respiratory arrest [Fatal]
  - Asthenia [Unknown]
  - Fatigue [Unknown]
  - Malaise [Unknown]
  - Anaemia [Unknown]
  - Wrong technique in product usage process [Unknown]
